FAERS Safety Report 5141242-X (Version None)
Quarter: 2006Q4

REPORT INFORMATION
  Report Type: 
  Country: None (occurrence: None)
  Receive Date: 20061026
  Receipt Date: 20061011
  Transmission Date: 20070319
  Serious: Yes (Other)
  Sender: FDA-Public Use
  Company Number: 2006128359

PATIENT
  Age: 56 Year
  Sex: Female
  Weight: 81.6475 kg

DRUGS (1)
  1. BEXTRA [Suspect]
     Indication: PAIN
     Dosage: 20 MG (10 MG, 2 IN 1 D)
     Dates: start: 20031121, end: 20060408

REACTIONS (5)
  - ANXIETY [None]
  - DEPRESSION [None]
  - GASTRITIS EROSIVE [None]
  - SCAR [None]
  - STEVENS-JOHNSON SYNDROME [None]
